FAERS Safety Report 16787774 (Version 1)
Quarter: 2019Q3

REPORT INFORMATION
  Report Type: Spontaneous
  Country: US (occurrence: US)
  Receive Date: 20190909
  Receipt Date: 20190909
  Transmission Date: 20191005
  Serious: Yes (Hospitalization, Other)
  Sender: FDA-Public Use
  Company Number: US-GLAXOSMITHKLINE-US2019GSK159570

PATIENT
  Age: 22 Year
  Sex: Female

DRUGS (3)
  1. PHENYLEPHRINE HYDROCHLORIDE. [Suspect]
     Active Substance: PHENYLEPHRINE HYDROCHLORIDE
     Indication: HYPOTENSION
     Dosage: UNK
  2. LIDOCAINE. [Suspect]
     Active Substance: LIDOCAINE
     Indication: VENTRICULAR TACHYCARDIA
     Dosage: UNK
  3. WELLBUTRIN XL [Suspect]
     Active Substance: BUPROPION HYDROCHLORIDE
     Indication: PRODUCT USED FOR UNKNOWN INDICATION
     Dosage: 644 MG/KG, UNK
     Route: 048

REACTIONS (13)
  - Generalised tonic-clonic seizure [Recovered/Resolved]
  - Hypotension [Unknown]
  - Electrocardiogram QT interval abnormal [Unknown]
  - Torsade de pointes [Unknown]
  - Pulseless electrical activity [Unknown]
  - Tachyarrhythmia [Unknown]
  - Toxicity to various agents [Unknown]
  - Circulatory collapse [Recovering/Resolving]
  - Drug ineffective [Unknown]
  - Electrocardiogram QRS complex abnormal [Unknown]
  - Ventricular tachycardia [Unknown]
  - Overdose [Unknown]
  - Ventricular extrasystoles [Unknown]
